FAERS Safety Report 26066244 (Version 3)
Quarter: 2025Q4

REPORT INFORMATION
  Report Type: Spontaneous
  Country: KR (occurrence: KR)
  Receive Date: 20251119
  Receipt Date: 20251216
  Transmission Date: 20260117
  Serious: No
  Sender: PFIZER
  Company Number: KR-PFIZER INC-PV202500133925

PATIENT
  Age: 10 Year
  Sex: Female

DRUGS (1)
  1. GENOTROPIN [Suspect]
     Active Substance: SOMATROPIN
     Indication: Small for dates baby
     Dosage: 4 IU, 6 TIMES WEEKLY
     Dates: start: 20240913

REACTIONS (2)
  - Drug dose omission by device [Unknown]
  - Device power source issue [Unknown]

NARRATIVE: CASE EVENT DATE: 20251107
